FAERS Safety Report 7089769-8 (Version None)
Quarter: 2010Q4

REPORT INFORMATION
  Report Type: 
  Country: None (occurrence: None)
  Receive Date: 20101108
  Receipt Date: 20100921
  Transmission Date: 20110411
  Serious: No
  Sender: FDA-Public Use
  Company Number: US-ABBOTT-10P-163-0672070-00

PATIENT
  Age: 48 Year
  Sex: Male
  Weight: 113 kg

DRUGS (31)
  1. TRICOR [Suspect]
     Indication: BLOOD CHOLESTEROL INCREASED
     Route: 048
     Dates: start: 20080901
  2. CHANTIX [Suspect]
     Indication: SMOKING CESSATION THERAPY
     Route: 048
     Dates: start: 20061010, end: 20061011
  3. CHANTIX [Suspect]
     Route: 048
     Dates: start: 20080701, end: 20080919
  4. CHANTIX [Suspect]
     Route: 048
  5. CHANTIX [Suspect]
     Route: 048
     Dates: start: 20080701, end: 20080919
  6. CELEBREX [Concomitant]
     Indication: BACK PAIN
  7. LISINOPRIL [Concomitant]
     Indication: BLOOD PRESSURE
     Route: 048
  8. LISINOPRIL [Concomitant]
  9. PROZAC [Concomitant]
     Indication: DEPRESSION
     Route: 048
  10. RISPERDAL [Concomitant]
     Indication: PRODUCT USED FOR UNKNOWN INDICATION
     Route: 050
  11. WELCHOL [Concomitant]
     Indication: BLOOD CHOLESTEROL
     Route: 048
  12. WELCHOL [Concomitant]
     Route: 048
  13. OMEGA-3-ACID ETHYL ESTERS (LOVAZA) [Concomitant]
     Indication: BLOOD CHOLESTEROL
     Route: 048
  14. OXCARBAZEPINE [Concomitant]
     Indication: PRODUCT USED FOR UNKNOWN INDICATION
  15. MONTELUKAST [Concomitant]
     Indication: PRODUCT USED FOR UNKNOWN INDICATION
  16. TRAZODONE [Concomitant]
     Indication: PRODUCT USED FOR UNKNOWN INDICATION
  17. LOVASTATIN [Concomitant]
     Indication: PRODUCT USED FOR UNKNOWN INDICATION
  18. DOXYCYCLINE [Concomitant]
     Indication: PRODUCT USED FOR UNKNOWN INDICATION
  19. TENIDAP SODIUM [Concomitant]
     Indication: PRODUCT USED FOR UNKNOWN INDICATION
  20. TAMSULOSIN [Concomitant]
     Indication: URINARY TRACT DISORDER
  21. METFORMIN HCL [Concomitant]
     Indication: BLOOD GLUCOSE ABNORMAL
  22. TRAMADOL HCL [Concomitant]
     Indication: PAIN
  23. DICLOFENAC SODIUM [Concomitant]
     Indication: PRODUCT USED FOR UNKNOWN INDICATION
  24. DEPAKOTE [Concomitant]
     Indication: PRODUCT USED FOR UNKNOWN INDICATION
  25. ACTOS [Concomitant]
     Indication: BLOOD GLUCOSE ABNORMAL
     Dosage: 40 MG DAILY
  26. BYETTA [Concomitant]
     Indication: PRODUCT USED FOR UNKNOWN INDICATION
  27. MAXZIDE [Concomitant]
     Indication: HYPERTENSION
  28. TYLENOL [Concomitant]
     Indication: HEADACHE
  29. SANCTURA [Concomitant]
     Indication: PROSTATOMEGALY
     Dosage: 60 MG DAILY
  30. LYRICA [Concomitant]
     Indication: BACK PAIN
  31. NEXIUM [Concomitant]
     Indication: GASTRIC DISORDER

REACTIONS (13)
  - ABDOMINAL DISCOMFORT [None]
  - DYSPEPSIA [None]
  - GASTROINTESTINAL DISORDER [None]
  - HEADACHE [None]
  - ILL-DEFINED DISORDER [None]
  - MEMORY IMPAIRMENT [None]
  - NAUSEA [None]
  - NERVOUSNESS [None]
  - PHOTOPHOBIA [None]
  - RASH [None]
  - TREMOR [None]
  - VOMITING [None]
  - WEIGHT DECREASED [None]
